FAERS Safety Report 8630240 (Version 8)
Quarter: 2013Q3

REPORT INFORMATION
  Report Type: Report from Study
  Country: JP (occurrence: JP)
  Receive Date: 20120622
  Receipt Date: 20130718
  Transmission Date: 20140515
  Serious: Yes (Other)
  Sender: FDA-Public Use
  Company Number: JP-GILEAD-2012-0056921

PATIENT
  Sex: Female

DRUGS (13)
  1. AMBRISENTAN [Suspect]
     Indication: PULMONARY ARTERIAL HYPERTENSION
     Dosage: 10 MG, QD
     Route: 048
     Dates: start: 20110224, end: 2012
  2. AMBRISENTAN [Suspect]
     Dosage: 2.5 MG, QD
     Route: 048
     Dates: start: 20101126, end: 20110127
  3. AMBRISENTAN [Suspect]
     Dosage: 5 MG, QD
     Route: 048
     Dates: start: 20110127, end: 20110223
  4. AMBRISENTAN [Suspect]
     Dosage: 5 MG, QD
     Route: 048
     Dates: start: 20121107
  5. AMBRISENTAN [Suspect]
     Dosage: 10 MG, QD
     Route: 048
     Dates: start: 201211
  6. FLOLAN [Concomitant]
     Indication: PULMONARY ARTERIAL HYPERTENSION
     Dosage: UNK
     Route: 042
     Dates: start: 20120725, end: 201211
  7. REVATIO [Concomitant]
     Indication: PULMONARY ARTERIAL HYPERTENSION
     Dosage: UNK
     Route: 048
     Dates: start: 20080625
  8. REVATIO [Concomitant]
     Route: 048
  9. REVATIO [Concomitant]
     Route: 048
  10. CARELOAD [Concomitant]
     Indication: PULMONARY ARTERIAL HYPERTENSION
     Dosage: UNK
     Route: 048
     Dates: start: 20090625
  11. BERASUS [Concomitant]
     Indication: PULMONARY ARTERIAL HYPERTENSION
     Dosage: UNK
     Route: 048
     Dates: start: 20080625
  12. WARFARIN [Concomitant]
     Dosage: UNK
     Route: 048
     Dates: end: 20111013
  13. PERDIPINE-LA [Concomitant]
     Route: 048

REACTIONS (2)
  - Exposure during pregnancy [Unknown]
  - Live birth [Unknown]
